FAERS Safety Report 8268306-6 (Version None)
Quarter: 2012Q2

REPORT INFORMATION
  Report Type: 
  Country: None (occurrence: None)
  Receive Date: 20120409
  Receipt Date: 20120327
  Transmission Date: 20120825
  Serious: Yes (Other)
  Sender: FDA-Public Use
  Company Number: US-FRI-1000028995

PATIENT
  Sex: Female
  Weight: 81 kg

DRUGS (23)
  1. METFORMIN HCL [Concomitant]
     Dosage: 2 TABLETS QAM, 1 TABLET QHS
     Route: 048
  2. ACCUPRIL [Concomitant]
     Dosage: 20 MG
     Route: 048
  3. VITAMIN B-12 [Concomitant]
     Dosage: 1 TABLET BID
     Route: 048
  4. NOVOLOG [Concomitant]
     Dosage: 5 UNITS TID
  5. KLOR-CON [Concomitant]
     Dosage: 1 TABLET BID
     Route: 048
  6. LEVOTHROID [Concomitant]
     Dosage: 100 MCG
     Route: 048
  7. FOLIC ACID [Concomitant]
     Dosage: 1 CAPSULE QD
     Route: 048
  8. ZETIA [Concomitant]
     Dosage: 10 MG QAM
     Route: 048
  9. LEVEMIR [Concomitant]
     Dosage: 25 UNITS BID
  10. VIIBRYD [Suspect]
     Dosage: 40 MG
     Dates: start: 20120125, end: 20120308
  11. ALPRAZOLAM [Concomitant]
  12. NORVASC [Concomitant]
     Dosage: 2.5 MG
     Route: 048
  13. ZONEGRAN [Concomitant]
     Dosage: 100 MG QD
  14. CRESTOR [Concomitant]
     Dosage: 10 MG QAM
     Route: 048
  15. CORAL CALCIUM [Concomitant]
     Route: 048
  16. VIIBRYD [Suspect]
     Dosage: 20 MG
     Dates: start: 20120118, end: 20120124
  17. ELMIRON [Concomitant]
     Dosage: 200 MG IN THE AM, 100 MG IN THE EVENING
  18. PLAVIX [Concomitant]
     Dosage: 75 MG
     Route: 048
  19. VIIBRYD [Suspect]
     Indication: DEPRESSION
     Dosage: 10 MG
     Dates: start: 20120111, end: 20120117
  20. ASPIRIN [Concomitant]
     Dosage: 81 MG
     Route: 048
  21. MIRALAX [Concomitant]
  22. NEXIUM [Concomitant]
     Dosage: 40 MG
     Route: 048
  23. LASIX [Concomitant]
     Dosage: 40 MG BID PRN
     Route: 048

REACTIONS (9)
  - ATRIAL FIBRILLATION [None]
  - BLOOD GLUCOSE INCREASED [None]
  - CHEST PAIN [None]
  - ATRIAL FLUTTER [None]
  - FATIGUE [None]
  - PAIN IN JAW [None]
  - GAIT DISTURBANCE [None]
  - MUSCULOSKELETAL DISCOMFORT [None]
  - DYSPNOEA [None]
